FAERS Safety Report 20774887 (Version 1)
Quarter: 2022Q2

REPORT INFORMATION
  Report Type: Spontaneous
  Country: US (occurrence: None)
  Receive Date: 20220501
  Receipt Date: 20220501
  Transmission Date: 20220721
  Serious: Yes (Disabling, Other)
  Sender: FDA-Public Use
  Company Number: None

PATIENT
  Age: 54 Year
  Sex: Female
  Weight: 99.45 kg

DRUGS (1)
  1. MONTELUKAST [Suspect]
     Active Substance: MONTELUKAST SODIUM
     Indication: Rhinitis allergic
     Dates: start: 20211223, end: 20220402

REACTIONS (7)
  - Vertigo [None]
  - Ear congestion [None]
  - Hallucination, visual [None]
  - Disorientation [None]
  - Anxiety [None]
  - Crying [None]
  - Therapy cessation [None]

NARRATIVE: CASE EVENT DATE: 20220328
